FAERS Safety Report 4527297-1 (Version None)
Quarter: 2004Q4

REPORT INFORMATION
  Report Type: 
  Country: None (occurrence: None)
  Receive Date: 20041215
  Receipt Date: 20041203
  Transmission Date: 20050328
  Serious: Yes (Death)
  Sender: FDA-Public Use
  Company Number: US-JNJFOC-20041104123

PATIENT
  Sex: Male
  Weight: 183.25 kg

DRUGS (2)
  1. REMICADE [Suspect]
     Indication: UVEITIS
     Route: 042
  2. PRED FORTE [Concomitant]
     Indication: INFLAMMATION

REACTIONS (7)
  - CHRONIC OBSTRUCTIVE AIRWAYS DISEASE [None]
  - GASTRIC CANCER STAGE IV WITH METASTASES [None]
  - MALIGNANT ASCITES [None]
  - MALIGNANT NEOPLASM PROGRESSION [None]
  - OESOPHAGEAL ADENOCARCINOMA [None]
  - PNEUMONIA [None]
  - SARCOIDOSIS [None]
